FAERS Safety Report 9234561 (Version 1)
Quarter: 2013Q2

REPORT INFORMATION
  Report Type: Report from Study
  Country: US (occurrence: US)
  Receive Date: 20130416
  Receipt Date: 20130416
  Transmission Date: 20140414
  Serious: Yes (Hospitalization)
  Sender: FDA-Public Use
  Company Number: US-BRISTOL-MYERS SQUIBB COMPANY-18754168

PATIENT
  Age: 47 Year
  Sex: Male
  Weight: 107 kg

DRUGS (1)
  1. CISPLATIN [Suspect]
     Indication: OROPHARYNGEAL CANCER
     Dates: start: 20130225, end: 20130318

REACTIONS (1)
  - Odynophagia [Recovered/Resolved with Sequelae]
